FAERS Safety Report 11425593 (Version 2)
Quarter: 2015Q3

REPORT INFORMATION
  Report Type: Spontaneous
  Country: US (occurrence: US)
  Receive Date: 20150827
  Receipt Date: 20150914
  Transmission Date: 20151125
  Serious: Yes (Death, Hospitalization)
  Sender: FDA-Public Use
  Company Number: US-ACTELION-A-NJ2015-122787

PATIENT
  Age: 69 Year
  Sex: Female

DRUGS (1)
  1. VELETRI [Suspect]
     Active Substance: EPOPROSTENOL
     Indication: PULMONARY HYPERTENSION
     Dosage: 6 NG/KG, PER MIN
     Route: 042
     Dates: end: 20150817

REACTIONS (5)
  - Deep vein thrombosis [Unknown]
  - Systemic sclerosis [Fatal]
  - Acute kidney injury [Fatal]
  - Pulmonary arterial hypertension [Fatal]
  - Pneumonia [Unknown]

NARRATIVE: CASE EVENT DATE: 20150817
